FAERS Safety Report 5695428-6 (Version None)
Quarter: 2008Q2

REPORT INFORMATION
  Report Type: 
  Country: None (occurrence: None)
  Receive Date: 20080403
  Receipt Date: 20080327
  Transmission Date: 20081010
  Serious: Yes (Life-Threatening)
  Sender: FDA-Public Use
  Company Number: 2008TJ0059

PATIENT
  Age: 55 Year
  Sex: Male

DRUGS (1)
  1. TWINJECT (EPINEPHRINE) AUTOINJECTOR 0.3 MG [Suspect]
     Indication: ANAPHYLACTIC REACTION
     Dosage: INTRAMUSCULAR
     Route: 030

REACTIONS (3)
  - DRUG INEFFECTIVE [None]
  - MEDICAL DEVICE COMPLICATION [None]
  - PHARMACEUTICAL PRODUCT COMPLAINT [None]
